FAERS Safety Report 16336260 (Version 1)
Quarter: 2019Q2

REPORT INFORMATION
  Report Type: Other
  Country: GB (occurrence: GB)
  Receive Date: 20190521
  Receipt Date: 20190521
  Transmission Date: 20190711
  Serious: Yes (Hospitalization)
  Sender: FDA-Public Use
  Company Number: GB-GUARDIAN DRUG COMPANY-2067252

PATIENT
  Age: 59 Year
  Sex: Female

DRUGS (1)
  1. CHILDRENS IBUPROFEN [Suspect]
     Active Substance: IBUPROFEN
     Indication: BACK PAIN

REACTIONS (2)
  - Gastrointestinal ulcer [Recovering/Resolving]
  - Perforation [Recovered/Resolved]
